FAERS Safety Report 20542956 (Version 1)
Quarter: 2022Q1

REPORT INFORMATION
  Report Type: Other
  Country: NL (occurrence: ES)
  Receive Date: 20220302
  Receipt Date: 20220302
  Transmission Date: 20220423
  Serious: Yes (Other)
  Sender: FDA-Public Use
  Company Number: None

PATIENT

DRUGS (7)
  1. PITAVASTATIN CALCIUM [Suspect]
     Active Substance: PITAVASTATIN CALCIUM
     Indication: Hyperlipidaemia
     Dosage: 2.0 MG CE
     Route: 048
     Dates: start: 20220118, end: 20220217
  2. PARACETAMOL AUROVITAS [Concomitant]
     Indication: Hypertension
     Dosage: 650.0 MG DECOCE
     Route: 048
     Dates: start: 20150511
  3. ASPIRIN [Concomitant]
     Active Substance: ASPIRIN
     Indication: Hypertension
     Dosage: 100.0 MG DE
     Route: 048
     Dates: start: 20150521
  4. HYDROCHLOROTHIAZIDE\VALSARTAN [Concomitant]
     Active Substance: HYDROCHLOROTHIAZIDE\VALSARTAN
     Indication: Hypertension
     Dosage: 160.0 MG DE
     Route: 048
     Dates: start: 20161123
  5. MASTICAL D [Concomitant]
     Indication: Bone disorder
     Dosage: 1.0 COMP C/24 H
     Route: 048
     Dates: start: 20210624
  6. OMEPRAZOL CINFA [Concomitant]
     Indication: Gastrooesophageal reflux disease
     Dosage: 20.0 MG A-DE
     Route: 048
     Dates: start: 20210615
  7. PAROXETINE HYDROCHLORIDE [Concomitant]
     Active Substance: PAROXETINE HYDROCHLORIDE
     Indication: Persistent depressive disorder
     Dosage: 40.0 MG DE
     Route: 048
     Dates: start: 20190828

REACTIONS (2)
  - Tremor [Recovering/Resolving]
  - Constipation [Recovering/Resolving]

NARRATIVE: CASE EVENT DATE: 20220128
